FAERS Safety Report 11261268 (Version 4)
Quarter: 2015Q4

REPORT INFORMATION
  Report Type: Spontaneous
  Country: US (occurrence: US)
  Receive Date: 20150710
  Receipt Date: 20151216
  Transmission Date: 20160304
  Serious: Yes (Other)
  Sender: FDA-Public Use
  Company Number: US-BAYER-2015-376395

PATIENT
  Age: 37 Year
  Sex: Female
  Weight: 65.76 kg

DRUGS (2)
  1. MIRENA [Suspect]
     Active Substance: LEVONORGESTREL
     Dosage: 20 MCG/24HR, CONT
     Route: 015
     Dates: start: 20100212, end: 201006
  2. MIRENA [Suspect]
     Active Substance: LEVONORGESTREL
     Dosage: 20 MCG/24HR, CONT
     Route: 015
     Dates: start: 20120229, end: 20130402

REACTIONS (7)
  - Infertility female [None]
  - Injury [None]
  - Emotional distress [None]
  - Device issue [None]
  - Pain [None]
  - Procedural pain [None]
  - Embedded device [None]

NARRATIVE: CASE EVENT DATE: 201303
